FAERS Safety Report 6380722-6 (Version None)
Quarter: 2009Q3

REPORT INFORMATION
  Report Type: 
  Country: None (occurrence: None)
  Receive Date: 20090929
  Receipt Date: 20090922
  Transmission Date: 20100115
  Serious: Yes (Hospitalization, Other)
  Sender: FDA-Public Use
  Company Number: US-BAYER-200512211GDS

PATIENT
  Age: 75 Year
  Sex: Male
  Weight: 90 kg

DRUGS (9)
  1. LEVOFLOXACIN [Interacting]
     Indication: URINARY TRACT INFECTION
     Route: 065
  2. ASPIRIN [Suspect]
     Indication: UNEVALUABLE EVENT
     Route: 065
  3. CITALOPRAM [Suspect]
     Indication: UNEVALUABLE EVENT
     Route: 065
  4. DONEPEZIL HCL [Interacting]
     Indication: UNEVALUABLE EVENT
     Route: 065
  5. DOXAZOSIN MESYLATE [Concomitant]
     Indication: UNEVALUABLE EVENT
     Route: 065
  6. FOLATE SODIUM [Concomitant]
     Indication: UNEVALUABLE EVENT
     Route: 065
  7. GABAPENTIN [Concomitant]
     Indication: UNEVALUABLE EVENT
     Dosage: TOTAL DAILY DOSE: 2400 MG
     Route: 065
  8. DIVALPROEX SODIUM [Concomitant]
     Indication: UNEVALUABLE EVENT
     Dosage: TOTAL DAILY DOSE: 1000 MG
     Route: 065
  9. RANITIDINE [Concomitant]
     Indication: UNEVALUABLE EVENT
     Dosage: TOTAL DAILY DOSE: 300 MG
     Route: 065

REACTIONS (1)
  - CONVULSION [None]
